FAERS Safety Report 12306390 (Version 1)
Quarter: 2016Q2

REPORT INFORMATION
  Report Type: Spontaneous
  Country: FR (occurrence: FR)
  Receive Date: 20160426
  Receipt Date: 20160426
  Transmission Date: 20160815
  Serious: Yes (Other)
  Sender: FDA-Public Use
  Company Number: FR-PFIZER INC-2016222758

PATIENT
  Age: 79 Year
  Sex: Male

DRUGS (14)
  1. TAHOR [Concomitant]
     Active Substance: ATORVASTATIN CALCIUM
  2. VFEND [Concomitant]
     Active Substance: VORICONAZOLE
     Dosage: 400 MG, 2X/DAY
  3. COLIMYCINE /00013206/ [Concomitant]
     Indication: PSEUDOMONAS INFECTION
     Dosage: UNK
     Dates: start: 20160329, end: 20160405
  4. VFEND [Concomitant]
     Active Substance: VORICONAZOLE
     Dosage: 200 MG, 2X/DAY
  5. BACTRIM [Concomitant]
     Active Substance: SULFAMETHOXAZOLE\TRIMETHOPRIM
     Indication: PROPHYLAXIS
     Dosage: 1 DF, DAILY
  6. INEXIUM /01479302/ [Concomitant]
     Active Substance: ESOMEPRAZOLE MAGNESIUM
  7. CARDENSIEL [Concomitant]
     Active Substance: BISOPROLOL FUMARATE
  8. TAZOCILLINE [Concomitant]
     Active Substance: PIPERACILLIN SODIUM\TAZOBACTAM SODIUM
     Indication: PSEUDOMONAS INFECTION
     Dosage: UNK
     Dates: end: 20160329
  9. NEBCINE [Concomitant]
     Active Substance: TOBRAMYCIN
     Indication: PSEUDOMONAS INFECTION
     Dosage: UNK
     Dates: start: 20160329, end: 20160405
  10. NEURONTIN [Suspect]
     Active Substance: GABAPENTIN
     Indication: PERIPHERAL SENSORIMOTOR NEUROPATHY
     Dosage: UNK
     Route: 048
     Dates: start: 2016
  11. BRICANYL [Concomitant]
     Active Substance: TERBUTALINE SULFATE
     Route: 055
  12. INNOHEP [Concomitant]
     Active Substance: TINZAPARIN SODIUM
  13. LASILIX /00032601/ [Concomitant]
     Active Substance: FUROSEMIDE
  14. CORTANCYL [Concomitant]
     Active Substance: PREDNISONE

REACTIONS (1)
  - Myoclonus [Not Recovered/Not Resolved]

NARRATIVE: CASE EVENT DATE: 201604
